FAERS Safety Report 15949513 (Version 2)
Quarter: 2019Q2

REPORT INFORMATION
  Report Type: Spontaneous
  Country: US (occurrence: US)
  Receive Date: 20190211
  Receipt Date: 20190418
  Transmission Date: 20190711
  Serious: Yes (Other)
  Sender: FDA-Public Use
  Company Number: US-ASTRAZENECA-2018SF25974

PATIENT
  Sex: Female

DRUGS (17)
  1. CYMBALTA [Concomitant]
     Active Substance: DULOXETINE HYDROCHLORIDE
  2. LIPITOR [Concomitant]
     Active Substance: ATORVASTATIN CALCIUM
  3. FLUVIRIN NOS [Concomitant]
     Active Substance: INFLUENZA VIRUS VACCINE
  4. PREVACID [Suspect]
     Active Substance: LANSOPRAZOLE
     Route: 065
  5. PANTOPRAZOLE [Suspect]
     Active Substance: PANTOPRAZOLE
     Route: 065
  6. METOCLOPRAMIDE. [Concomitant]
     Active Substance: METOCLOPRAMIDE
  7. ANTARA [Concomitant]
     Active Substance: FENOFIBRATE
  8. PREDNISONE. [Concomitant]
     Active Substance: PREDNISONE
  9. PRILOSEC [Suspect]
     Active Substance: OMEPRAZOLE MAGNESIUM
     Route: 048
  10. LOVAZA [Concomitant]
     Active Substance: OMEGA-3-ACID ETHYL ESTERS
  11. MELOXICAM. [Concomitant]
     Active Substance: MELOXICAM
  12. GABAPENTIN. [Concomitant]
     Active Substance: GABAPENTIN
  13. NEXIUM [Suspect]
     Active Substance: ESOMEPRAZOLE MAGNESIUM
     Route: 048
     Dates: start: 20071208, end: 20171231
  14. DEXILANT [Suspect]
     Active Substance: DEXLANSOPRAZOLE
     Route: 065
     Dates: start: 20071208, end: 20171231
  15. LIOFEN [Concomitant]
  16. NEXIUM [Suspect]
     Active Substance: ESOMEPRAZOLE MAGNESIUM
     Dosage: 40.0MG UNKNOWN
     Route: 048
     Dates: start: 20071208
  17. AMITIZA [Concomitant]
     Active Substance: LUBIPROSTONE

REACTIONS (3)
  - Renal failure [Unknown]
  - Gastrooesophageal reflux disease [Unknown]
  - Chronic kidney disease [Unknown]
